FAERS Safety Report 19485281 (Version 1)
Quarter: 2021Q3

REPORT INFORMATION
  Report Type: Report from Study
  Country: DE (occurrence: DE)
  Receive Date: 20210702
  Receipt Date: 20210702
  Transmission Date: 20211014
  Serious: Yes (Other)
  Sender: FDA-Public Use
  Company Number: DE-TEVA-2021-DE-1928969

PATIENT
  Sex: Female

DRUGS (3)
  1. ULIPRISTAL [Interacting]
     Active Substance: ULIPRISTAL
     Indication: POST COITAL CONTRACEPTION
     Route: 065
  2. MISOPROSTOL. [Interacting]
     Active Substance: MISOPROSTOL
     Indication: ABORTION INDUCED
     Dosage: 400 MICROGRAM DAILY;
     Route: 065
  3. CARBAMAZEPINE. [Suspect]
     Active Substance: CARBAMAZEPINE
     Indication: EPILEPSY
     Dosage: 800 MILLIGRAM DAILY;
     Route: 065

REACTIONS (4)
  - Drug interaction [Unknown]
  - Maternal exposure during pregnancy [Unknown]
  - Abortion induced [Unknown]
  - Pregnancy on contraceptive [Unknown]
